APPROVED DRUG PRODUCT: NAFAZAIR
Active Ingredient: NAPHAZOLINE HYDROCHLORIDE
Strength: 0.1%
Dosage Form/Route: SOLUTION/DROPS;OPHTHALMIC
Application: A040073 | Product #001
Applicant: BAUSCH AND LOMB PHARMACEUTICALS INC
Approved: May 25, 1994 | RLD: No | RS: No | Type: DISCN